FAERS Safety Report 20798662 (Version 2)
Quarter: 2022Q2

REPORT INFORMATION
  Report Type: Report from Study
  Country: US (occurrence: US)
  Receive Date: 20220507
  Receipt Date: 20220616
  Transmission Date: 20220721
  Serious: No
  Sender: FDA-Public Use
  Company Number: US-BRISTOL-MYERS SQUIBB COMPANY-2022-025386

PATIENT
  Age: 48 Year
  Sex: Male

DRUGS (1)
  1. ZEPOSIA [Suspect]
     Active Substance: OZANIMOD HYDROCHLORIDE
     Indication: Multiple sclerosis
     Route: 048
     Dates: start: 20220218, end: 20220603

REACTIONS (5)
  - Memory impairment [Not Recovered/Not Resolved]
  - Lethargy [Not Recovered/Not Resolved]
  - Motor dysfunction [Not Recovered/Not Resolved]
  - Muscle tightness [Not Recovered/Not Resolved]
  - Feeling guilty [Not Recovered/Not Resolved]

NARRATIVE: CASE EVENT DATE: 20220417
